FAERS Safety Report 4477406-8 (Version None)
Quarter: 2004Q4

REPORT INFORMATION
  Report Type: 
  Country: None (occurrence: None)
  Receive Date: 20041013
  Receipt Date: 20041007
  Transmission Date: 20050328
  Serious: Yes (Hospitalization, Other)
  Sender: FDA-Public Use
  Company Number: 200412811GDS

PATIENT
  Age: 76 Year
  Sex: Male

DRUGS (2)
  1. ASPIRIN [Suspect]
     Indication: CATARACT OPERATION
  2. CLOPIDOGREL [Suspect]
     Indication: CATARACT OPERATION

REACTIONS (4)
  - DIALYSIS [None]
  - DRUG INTERACTION [None]
  - HYPHAEMA [None]
  - VITREOUS HAEMORRHAGE [None]
